FAERS Safety Report 8990630 (Version 2)
Quarter: 2013Q1

REPORT INFORMATION
  Report Type: Report from Study
  Country: US (occurrence: US)
  Receive Date: 20121228
  Receipt Date: 20130315
  Transmission Date: 20140127
  Serious: Yes (Hospitalization)
  Sender: FDA-Public Use
  Company Number: US-ABBOTT-12P-163-1024981-00

PATIENT
  Sex: Female
  Weight: 148.91 kg

DRUGS (12)
  1. HUMIRA PEN [Suspect]
     Indication: CROHN^S DISEASE
     Dates: start: 20120908, end: 20121201
  2. SYNTHROID [Concomitant]
     Indication: HYPOTHYROIDISM
     Dosage: 125 MG DAILY
  3. FLONASE [Concomitant]
     Indication: HYPERSENSITIVITY
     Dosage: 2 SPRAYS AT NIGHT DAILY
  4. VSL#3 [Concomitant]
     Indication: CROHN^S DISEASE
     Dosage: 4 PACKETS DAILY
  5. IRON [Concomitant]
     Indication: ANAEMIA
     Dosage: 65 MG X 4 TAB DAILY
  6. VITAMIN D NOS [Concomitant]
     Indication: VITAMIN D DECREASED
     Dosage: 5000 UNITS DAILY
  7. CALCIUM/MAGNESIUM/POTASSIUM [Concomitant]
     Indication: ROUTINE HEALTH MAINTENANCE
     Dosage: 3 TABS DAILY
  8. MULTIVITAMIN [Concomitant]
     Indication: ROUTINE HEALTH MAINTENANCE
     Dosage: 2 TABS DAILY
  9. LIALDA [Concomitant]
  10. PREDNISONE [Concomitant]
     Indication: PRODUCT USED FOR UNKNOWN INDICATION
  11. ZYRTEC [Concomitant]
     Indication: PRODUCT USED FOR UNKNOWN INDICATION
  12. ROWASA ENEMA [Concomitant]
     Indication: PRODUCT USED FOR UNKNOWN INDICATION

REACTIONS (4)
  - Large intestine perforation [Unknown]
  - Crohn^s disease [Not Recovered/Not Resolved]
  - Gastrointestinal stoma complication [Not Recovered/Not Resolved]
  - Drug ineffective [Unknown]
